FAERS Safety Report 5941993-0 (Version None)
Quarter: 2008Q4

REPORT INFORMATION
  Report Type: 
  Country: None (occurrence: None)
  Receive Date: 20081031
  Receipt Date: 20081017
  Transmission Date: 20090506
  Serious: Yes (Death, Life-Threatening, Hospitalization)
  Sender: FDA-Public Use
  Company Number: 2008PL000148

PATIENT
  Age: 78 Year
  Sex: Male

DRUGS (13)
  1. IMURAN [Suspect]
     Indication: IMMUNOSUPPRESSION
     Dosage: 150 MG;QD;PO
     Route: 048
     Dates: start: 20050903, end: 20080530
  2. PREDNISONE TAB [Suspect]
     Indication: IMMUNOSUPPRESSION
     Dosage: 40 MG;QD;PO
     Route: 048
     Dates: start: 20050903, end: 20080530
  3. PERCOCET [Concomitant]
  4. LIDODERM [Concomitant]
  5. IBUPROFEN TABLETS [Concomitant]
  6. CARAFATE [Concomitant]
  7. ECHINACEA [Concomitant]
  8. NASONEX [Concomitant]
  9. PROTONIX [Concomitant]
  10. BACTRIM DS [Concomitant]
  11. LOVASTATIN [Concomitant]
  12. ASPIRIN [Concomitant]
  13. INVESTIGATIONAL DRUG [Concomitant]

REACTIONS (6)
  - ARRHYTHMIA [None]
  - ATRIAL FLUTTER [None]
  - BRONCHOPULMONARY ASPERGILLOSIS [None]
  - CARDIAC ARREST [None]
  - PNEUMONIA STREPTOCOCCAL [None]
  - RESPIRATORY FAILURE [None]
